FAERS Safety Report 10026124 (Version 1)
Quarter: 2014Q1

REPORT INFORMATION
  Report Type: Spontaneous
  Country: US (occurrence: US)
  Receive Date: 20140320
  Receipt Date: 20140320
  Transmission Date: 20141002
  Serious: No
  Sender: FDA-Public Use
  Company Number: US-ALLERGAN-1403391US

PATIENT
  Age: 70 Year
  Sex: Male

DRUGS (5)
  1. LUMIGAN 0.01% [Suspect]
     Indication: GLAUCOMA TRAUMATIC
     Dosage: 2 GTT, QHS
     Route: 047
  2. VALSARTAN [Concomitant]
     Indication: HYPERTENSION
     Dosage: UNK
     Route: 048
  3. LEVOTHYROXINE [Concomitant]
     Indication: PRODUCT USED FOR UNKNOWN INDICATION
     Dosage: 50 ?G, UNK
  4. WARFARIN [Concomitant]
     Indication: PULMONARY EMBOLISM
     Dosage: 5 MG, UNK
  5. COQ10                              /00517201/ [Concomitant]
     Indication: PRODUCT USED FOR UNKNOWN INDICATION

REACTIONS (4)
  - Lethargy [Unknown]
  - Feeling abnormal [Unknown]
  - Hypotension [Recovering/Resolving]
  - Weight increased [Unknown]
